FAERS Safety Report 14479681 (Version 3)
Quarter: 2018Q3

REPORT INFORMATION
  Report Type: Other
  Country: DE (occurrence: DE)
  Receive Date: 20180202
  Receipt Date: 20180929
  Transmission Date: 20181010
  Serious: Yes (Hospitalization, Other)
  Sender: FDA-Public Use
  Company Number: DE-MACLEODS PHARMACEUTICALS US LTD-MAC2018009082

PATIENT

DRUGS (15)
  1. AMPHOTERICIN B. [Suspect]
     Active Substance: AMPHOTERICIN B
     Dosage: 5 UNK, INJECTION, 8 MG/KG/DAYS AS A 3?H INFUSION FOR28 DAYS
     Route: 065
  2. VINCRISTINE [Concomitant]
     Active Substance: VINCRISTINE
     Indication: T-CELL TYPE ACUTE LEUKAEMIA
     Dosage: UNK
     Route: 065
  3. METHOTREXATE. [Concomitant]
     Active Substance: METHOTREXATE
     Indication: T-CELL TYPE ACUTE LEUKAEMIA
     Dosage: UNK
     Route: 037
  4. SODIUM CHLORIDE. [Suspect]
     Active Substance: SODIUM CHLORIDE
     Indication: PRODUCT USED FOR UNKNOWN INDICATION
     Dosage: 0.9 %, UNK
     Route: 045
  5. DEXAMETHASONE. [Suspect]
     Active Substance: DEXAMETHASONE
     Indication: T-CELL TYPE ACUTE LEUKAEMIA
     Dosage: UNK, 10 MG/M2 FOR 21 DAYS THEN TAPERING
     Route: 065
  6. PEGASPARGASE [Suspect]
     Active Substance: PEGASPARGASE
     Indication: T-CELL TYPE ACUTE LEUKAEMIA
     Dosage: UNK
     Route: 065
  7. AZITHROMYCIN ANHYDROUS. [Suspect]
     Active Substance: AZITHROMYCIN ANHYDROUS
     Indication: ASPERGILLUS INFECTION
     Dosage: 10 MG/KG PER DAY UNK, 10 MG/KG PER DAY FOR 5 DAYS THEN 10 MG/KG/DAY TWO TIMES WEEK, 6 WEEKS
     Route: 042
  8. DAUNORUBICIN [Concomitant]
     Active Substance: DAUNORUBICIN
     Indication: T-CELL TYPE ACUTE LEUKAEMIA
     Dosage: UNK
     Route: 065
  9. AMPHOTERICIN B. [Suspect]
     Active Substance: AMPHOTERICIN B
     Indication: ASPERGILLUS INFECTION
     Dosage: 4 MG/KG, QD, 8 MG/KG/DAYS AS A 3?H INFUSION FOR28 DAYS FOLLOWED BY 5 MG/KG/DAY AS A 2?H
     Route: 065
  10. AMPHOTERICIN B. [Suspect]
     Active Substance: AMPHOTERICIN B
     Dosage: 8 MILLIGRAM/KILOGRAM, QD, INJECTION, 8 MG/KG/DAYS AS A 3?H INFUSION FOR28 DAYS
     Route: 065
  11. LEVOFLOXACIN. [Suspect]
     Active Substance: LEVOFLOXACIN
     Indication: ASPERGILLUS INFECTION
     Dosage: 20 MG/KG IN 2 SINGLE DOSES FOR 21 DAYS
     Route: 042
  12. PREDNISOLONE. [Suspect]
     Active Substance: PREDNISOLONE
     Indication: T-CELL TYPE ACUTE LEUKAEMIA
     Dosage: UNK
     Route: 065
  13. VORICONAZOLE. [Suspect]
     Active Substance: VORICONAZOLE
     Indication: ASPERGILLUS INFECTION
     Dosage: 9 MG/KG, BID, 0.5 DAY, 9 MG/KG ON DAY ONE FOLLOWED BY 8 MG/KG DAILY
     Route: 042
  14. VORICONAZOLE. [Suspect]
     Active Substance: VORICONAZOLE
     Dosage: 8 MG/KG, BID
     Route: 050
  15. AMPHOTERICIN B. [Suspect]
     Active Substance: AMPHOTERICIN B
     Dosage: 2.5 MILLIGRAM/KILOGRAM, QD, INJECTION, 8 MG/KG/DAYS AS A 3?H INFUSION FOR28 DAYS
     Route: 065

REACTIONS (6)
  - Pneumonia legionella [Recovered/Resolved]
  - Hypokalaemia [Unknown]
  - Off label use [Unknown]
  - Product contamination microbial [Recovered/Resolved]
  - Pancreatitis acute [Recovered/Resolved]
  - Aspergillus infection [Recovered/Resolved]
